FAERS Safety Report 7959594-1 (Version None)
Quarter: 2011Q4

REPORT INFORMATION
  Report Type: 
  Country: None (occurrence: None)
  Receive Date: 20111201
  Receipt Date: 20111125
  Transmission Date: 20120403
  Serious: Yes (Hospitalization, Other)
  Sender: FDA-Public Use
  Company Number: ADR-2011-11605

PATIENT
  Sex: Female

DRUGS (2)
  1. BACLOFEN [Suspect]
     Indication: MUSCLE SPASTICITY
  2. BACLOFEN [Suspect]
     Indication: CEREBRAL PALSY

REACTIONS (12)
  - IRRITABILITY [None]
  - HEART RATE ABNORMAL [None]
  - DEVICE INVERSION [None]
  - CRYING [None]
  - HYPERHIDROSIS [None]
  - CONVULSION [None]
  - PYREXIA [None]
  - VOLVULUS [None]
  - MUSCLE SPASMS [None]
  - PAIN [None]
  - DEVICE KINK [None]
  - DRUG WITHDRAWAL SYNDROME [None]
